FAERS Safety Report 18924856 (Version 33)
Quarter: 2025Q1

REPORT INFORMATION
  Report Type: Spontaneous
  Country: US (occurrence: US)
  Receive Date: 20210222
  Receipt Date: 20250331
  Transmission Date: 20250408
  Serious: Yes (Other)
  Sender: PFIZER
  Company Number: US-PFIZER INC-2021141952

PATIENT
  Age: 75 Year
  Sex: Female
  Weight: 50.34 kg

DRUGS (11)
  1. PREMARIN [Suspect]
     Active Substance: ESTROGENS, CONJUGATED
     Indication: Hormone replacement therapy
     Dosage: 1.25 MG, ALTERNATE DAY
     Route: 048
  2. PREMARIN [Suspect]
     Active Substance: ESTROGENS, CONJUGATED
     Dosage: 0.625 MG, ALTERNATE DAY
     Route: 048
  3. PREMARIN [Suspect]
     Active Substance: ESTROGENS, CONJUGATED
  4. PREMARIN [Suspect]
     Active Substance: ESTROGENS, CONJUGATED
  5. PREMARIN [Suspect]
     Active Substance: ESTROGENS, CONJUGATED
     Dosage: 0.625 MG, DAILY
  6. PREMARIN [Suspect]
     Active Substance: ESTROGENS, CONJUGATED
     Dosage: 1.25 MG, DAILY
  7. PREMARIN [Suspect]
     Active Substance: ESTROGENS, CONJUGATED
  8. PREMARIN [Suspect]
     Active Substance: ESTROGENS, CONJUGATED
  9. PREMARIN [Suspect]
     Active Substance: ESTROGENS, CONJUGATED
     Dosage: 0.625 MG, ALTERNATE DAY
  10. PREMARIN [Suspect]
     Active Substance: ESTROGENS, CONJUGATED
     Dosage: 1.25 MG, ALTERNATE DAY
  11. XALATAN [Concomitant]
     Active Substance: LATANOPROST
     Indication: Glaucoma
     Dosage: UNK, 1X/DAY(A DROP IN EACH EYE EVERY NIGHT)

REACTIONS (16)
  - Idiopathic environmental intolerance [Unknown]
  - Allergy to chemicals [Unknown]
  - Blood pressure increased [Unknown]
  - Intentional product misuse [Unknown]
  - Off label use [Unknown]
  - Crying [Unknown]
  - Insomnia [Unknown]
  - Anxiety [Unknown]
  - Memory impairment [Unknown]
  - Sensitisation [Unknown]
  - Ear disorder [Unknown]
  - Confusional state [Unknown]
  - Menopause [Unknown]
  - Parosmia [Unknown]
  - Tooth disorder [Unknown]
  - Illness [Unknown]
